FAERS Safety Report 19000312 (Version 1)
Quarter: 2021Q1

REPORT INFORMATION
  Report Type: Report from Study
  Country: US (occurrence: US)
  Receive Date: 20210311
  Receipt Date: 20210311
  Transmission Date: 20210420
  Serious: Yes (Hospitalization)
  Sender: FDA-Public Use
  Company Number: US-PFIZER INC-2021078185

PATIENT
  Age: 2 Month
  Sex: Female
  Weight: 4.08 kg

DRUGS (4)
  1. BLINDED PF?06928316 [Suspect]
     Active Substance: PF-06928316 (847B DS)
     Indication: IMMUNISATION
     Dosage: SINGLE DOSE
     Route: 050
     Dates: start: 20200908, end: 20200908
  2. PLACEBO [Suspect]
     Active Substance: UNSPECIFIED INGREDIENT
     Indication: IMMUNISATION
     Dosage: SINGLE DOSE
     Route: 050
     Dates: start: 20200908, end: 20200908
  3. BLINDED PF?06928316 [Suspect]
     Active Substance: PF-06928316 (847B DS)
     Indication: IMMUNISATION
     Dosage: SINGLE DOSE
     Route: 050
     Dates: start: 20200908, end: 20200908
  4. DIFLUCAN [Suspect]
     Active Substance: FLUCONAZOLE
     Indication: CANDIDA INFECTION
     Dosage: UNK
     Dates: start: 20210106, end: 20210120

REACTIONS (2)
  - Maternal exposure during pregnancy [Not Recovered/Not Resolved]
  - Failure to thrive [Not Recovered/Not Resolved]

NARRATIVE: CASE EVENT DATE: 20200908
